FAERS Safety Report 13107637 (Version 1)
Quarter: 2017Q1

REPORT INFORMATION
  Report Type: Spontaneous
  Country: US (occurrence: US)
  Receive Date: 20170112
  Receipt Date: 20170112
  Transmission Date: 20170428
  Serious: Yes (Hospitalization)
  Sender: FDA-Public Use
  Company Number: US-ACCORD-047272

PATIENT
  Sex: Male

DRUGS (1)
  1. ESCITALOPRAM [Suspect]
     Active Substance: ESCITALOPRAM OXALATE
     Indication: DEPRESSION
     Dosage: 20 MG THROUGHOUT PREGNANCY
     Route: 064

REACTIONS (7)
  - Crying [Recovered/Resolved]
  - Seizure [Recovered/Resolved]
  - Foetal exposure during pregnancy [Unknown]
  - Hypertonia [Recovered/Resolved]
  - Irritability [Recovered/Resolved]
  - Pupil fixed [Recovered/Resolved]
  - Electrocardiogram QT prolonged [Recovered/Resolved]
